FAERS Safety Report 4567169-X (Version None)
Quarter: 2005Q1

REPORT INFORMATION
  Report Type: 
  Country: None (occurrence: None)
  Receive Date: 20050201
  Receipt Date: 20041203
  Transmission Date: 20050727
  Serious: Yes (Hospitalization)
  Sender: FDA-Public Use
  Company Number: US-GLAXOSMITHKLINE-A0536385A

PATIENT
  Age: 35 Year
  Sex: Male
  Weight: 159.1 kg

DRUGS (1)
  1. WELLBUTRIN XL [Suspect]
     Indication: DEPRESSION
     Dosage: 450MG PER DAY
     Route: 048
     Dates: end: 20041128

REACTIONS (5)
  - COMPLEX PARTIAL SEIZURES [None]
  - HEMIPARESIS [None]
  - ILL-DEFINED DISORDER [None]
  - MEDICATION ERROR [None]
  - OVERDOSE [None]
